FAERS Safety Report 8533366-1 (Version None)
Quarter: 2012Q3

REPORT INFORMATION
  Report Type: 
  Country: None (occurrence: None)
  Receive Date: 20120724
  Receipt Date: 20120717
  Transmission Date: 20120928
  Serious: Yes (Other)
  Sender: FDA-Public Use
  Company Number: PHHY2012IT050974

PATIENT
  Age: 53 Year
  Sex: Male

DRUGS (4)
  1. L-DOPA [Suspect]
     Indication: PARKINSON'S DISEASE
     Dosage: 200 MG/ DAY
  2. PRAMIPEXOLE DIHYCHLORIDE [Suspect]
     Indication: PARKINSON'S DISEASE
     Dosage: 2.1 MG/DAY
  3. ENTACAPONE [Suspect]
     Indication: PARKINSON'S DISEASE
     Dosage: 800 MG/DAY
  4. PRAMIPEXOLE DIHYCHLORIDE [Suspect]
     Dosage: 1.4 MG/ DAY

REACTIONS (1)
  - PATHOLOGICAL GAMBLING [None]
